FAERS Safety Report 4595359-9 (Version None)
Quarter: 2005Q1

REPORT INFORMATION
  Report Type: 
  Country: None (occurrence: None)
  Receive Date: 20050225
  Receipt Date: 20050225
  Transmission Date: 20050727
  Serious: No
  Sender: FDA-Public Use
  Company Number: None

PATIENT
  Age: 54 Year
  Weight: 157 kg

DRUGS (1)
  1. LOSARTAN     100 MG [Suspect]
     Indication: HYPERTENSION
     Dosage: 100 MG QD ORAL
     Route: 048
     Dates: start: 20050201, end: 20050223

REACTIONS (3)
  - COUGH [None]
  - SWELLING FACE [None]
  - SWOLLEN TONGUE [None]
